FAERS Safety Report 23853578 (Version 2)
Quarter: 2024Q2

REPORT INFORMATION
  Report Type: Spontaneous
  Country: US (occurrence: US)
  Receive Date: 20240514
  Receipt Date: 20240516
  Transmission Date: 20240716
  Serious: Yes (Other)
  Sender: FDA-Public Use
  Company Number: US-ABBVIE-5752622

PATIENT
  Sex: Female

DRUGS (2)
  1. ORILISSA [Suspect]
     Active Substance: ELAGOLIX SODIUM
     Indication: Endometriosis
     Route: 048
  2. HYDROCODONE [Concomitant]
     Active Substance: HYDROCODONE
     Indication: Endometriosis
     Route: 065

REACTIONS (9)
  - Surgery [Unknown]
  - Pain [Unknown]
  - Ovarian cyst [Unknown]
  - Cyst [Unknown]
  - Polymenorrhoea [Not Recovered/Not Resolved]
  - Endometriosis [Not Recovered/Not Resolved]
  - Endometriosis [Not Recovered/Not Resolved]
  - Scar [Not Recovered/Not Resolved]
  - Abdominal distension [Unknown]
